FAERS Safety Report 16011929 (Version 2)
Quarter: 2019Q1

REPORT INFORMATION
  Report Type: Spontaneous
  Country: GB (occurrence: GB)
  Receive Date: 20190227
  Receipt Date: 20190307
  Transmission Date: 20190418
  Serious: Yes (Other)
  Sender: FDA-Public Use
  Company Number: GB-TEVA-2019-GB-1018776

PATIENT
  Age: 43 Year
  Sex: Male

DRUGS (3)
  1. DE-CAPEPTYL SR [Suspect]
     Active Substance: TRIPTORELIN ACETATE
     Indication: OFF LABEL USE
  2. DE-CAPEPTYL SR [Suspect]
     Active Substance: TRIPTORELIN ACETATE
     Indication: TRANSGENDER HORMONAL THERAPY
     Dosage: NOT REPORTED
  3. ESTRADIOL VALERATE. [Suspect]
     Active Substance: ESTRADIOL VALERATE
     Indication: TRANSGENDER HORMONAL THERAPY
     Route: 065

REACTIONS (5)
  - Interstitial lung disease [Unknown]
  - Gastrooesophageal reflux disease [Unknown]
  - Raynaud^s phenomenon [Unknown]
  - Overlap syndrome [Recovering/Resolving]
  - Off label use [Unknown]
